FAERS Safety Report 10234314 (Version 2)
Quarter: 2014Q2

REPORT INFORMATION
  Report Type: Report from Study
  Country: US (occurrence: US)
  Receive Date: 20140612
  Receipt Date: 20140612
  Transmission Date: 20141212
  Serious: Yes (Other)
  Sender: FDA-Public Use
  Company Number: US-B.I. PHARMACEUTICALS,INC./RIDGEFIELD-2007-BP-16884BP

PATIENT
  Age: 31 Year
  Sex: Female

DRUGS (3)
  1. VIRAMUNE [Suspect]
     Indication: HIV INFECTION
     Dosage: 400 MG
     Route: 048
     Dates: start: 20070201
  2. SUSTIVA [Suspect]
     Indication: HIV INFECTION
     Dosage: 600 MG
     Route: 048
     Dates: end: 20070201
  3. TRUVADA [Suspect]
     Indication: HIV INFECTION
     Route: 048
     Dates: start: 20070201

REACTIONS (3)
  - Stillbirth [Unknown]
  - Oligohydramnios [Unknown]
  - Pneumocystis jirovecii pneumonia [Unknown]
